FAERS Safety Report 20142055 (Version 1)
Quarter: 2021Q4

REPORT INFORMATION
  Report Type: Spontaneous
  Country: US (occurrence: None)
  Receive Date: 20211202
  Receipt Date: 20211202
  Transmission Date: 20220303
  Serious: Yes (Hospitalization)
  Sender: FDA-Public Use
  Company Number: None

PATIENT
  Age: 71 Year
  Sex: Male

DRUGS (1)
  1. REGEN-COV [Suspect]
     Active Substance: CASIRIVIMAB\IMDEVIMAB
     Indication: COVID-19
     Dosage: OTHER FREQUENCY : ONE-TIME INFUSION;?
     Route: 041
     Dates: start: 20211127, end: 20211127

REACTIONS (2)
  - Oxygen saturation decreased [None]
  - Pneumonia [None]

NARRATIVE: CASE EVENT DATE: 20211128
